FAERS Safety Report 23275450 (Version 1)
Quarter: 2023Q4

REPORT INFORMATION
  Report Type: Report from Study
  Country: US (occurrence: None)
  Receive Date: 20231208
  Receipt Date: 20231208
  Transmission Date: 20240110
  Serious: Yes (Other)
  Sender: FDA-Public Use
  Company Number: 2023A276125

PATIENT
  Sex: Female

DRUGS (2)
  1. LYNPARZA [Suspect]
     Active Substance: OLAPARIB
     Indication: Bone cancer
     Route: 048
     Dates: start: 202204
  2. LYNPARZA [Suspect]
     Active Substance: OLAPARIB
     Indication: Thyroid cancer
     Route: 048
     Dates: start: 202204

REACTIONS (2)
  - Intestinal haemorrhage [Unknown]
  - Underdose [Unknown]
